FAERS Safety Report 9817988 (Version 1)
Quarter: 2013Q4

REPORT INFORMATION
  Report Type: Spontaneous
  Country: US (occurrence: None)
  Receive Date: 20131223
  Receipt Date: 20131223
  Transmission Date: 20140711
  Serious: Yes (Other)
  Sender: FDA-Public Use
  Company Number: 220301

PATIENT
  Sex: Female

DRUGS (2)
  1. PICATO (0.015%, GEL) [Suspect]
     Indication: ACNE
     Route: 023
     Dates: start: 20130119, end: 20130119
  2. CORTICOSTEROID(CORTICOSTEROID NOS) [Concomitant]

REACTIONS (4)
  - Application site vesicles [None]
  - Drug administered at inappropriate site [None]
  - Off label use [None]
  - Incorrect drug administration duration [None]
